FAERS Safety Report 6690878-3 (Version None)
Quarter: 2010Q2

REPORT INFORMATION
  Report Type: 
  Country: None (occurrence: None)
  Receive Date: 20100421
  Receipt Date: 20100409
  Transmission Date: 20101027
  Serious: Yes (Hospitalization, Other)
  Sender: FDA-Public Use
  Company Number: US-PFIZER INC-2010024039

PATIENT
  Age: 24 Year
  Sex: Male

DRUGS (4)
  1. GEODON [Suspect]
     Indication: SCHIZOPHRENIA
     Dosage: UNK
     Dates: end: 20090101
  2. GEODON [Suspect]
     Dosage: 40 MG, 2X/DAY
     Route: 048
     Dates: start: 20090621, end: 20090621
  3. GEODON [Suspect]
     Dosage: 60 MG, 2X/DAY
     Route: 048
     Dates: start: 20090622
  4. LORAZEPAM [Suspect]
     Indication: SCHIZOPHRENIA
     Dosage: 1 MG, 3X/DAY
     Route: 048
     Dates: start: 20090622

REACTIONS (4)
  - ABNORMAL BEHAVIOUR [None]
  - HALLUCINATION, VISUAL [None]
  - HOMICIDE [None]
  - SCHIZOPHRENIA [None]
